FAERS Safety Report 6369054-X (Version None)
Quarter: 2009Q3

REPORT INFORMATION
  Report Type: 
  Country: None (occurrence: None)
  Receive Date: 20090922
  Receipt Date: 20090915
  Transmission Date: 20100115
  Serious: Yes (Other)
  Sender: FDA-Public Use
  Company Number: PHHO2009AU10589

PATIENT
  Sex: Male
  Weight: 95.6 kg

DRUGS (7)
  1. STI571/CGP57148B T35717+TAB [Suspect]
     Indication: CHRONIC MYELOID LEUKAEMIA
     Dosage: UNK
     Route: 048
     Dates: start: 20080616, end: 20090710
  2. TASIGNA [Suspect]
     Indication: CHRONIC MYELOID LEUKAEMIA
     Dosage: 800 MG, UNK
     Route: 048
     Dates: start: 20090803
  3. DIPROSONE [Concomitant]
     Indication: RASH
  4. PREDNISONE [Concomitant]
     Indication: RASH
  5. ELOCON [Concomitant]
     Indication: RASH
  6. FUROSEMIDE [Concomitant]
     Indication: FLUID RETENTION
  7. DIURETICS [Concomitant]
     Indication: FLUID RETENTION

REACTIONS (5)
  - ANGINA PECTORIS [None]
  - BLOOD CHOLESTEROL INCREASED [None]
  - CORONARY ARTERY STENOSIS [None]
  - DERMATITIS [None]
  - ELECTROCARDIOGRAM T WAVE AMPLITUDE DECREASED [None]
